FAERS Safety Report 9918834 (Version 1)
Quarter: 2014Q1

REPORT INFORMATION
  Report Type: Spontaneous
  Country: GB (occurrence: GB)
  Receive Date: 20140224
  Receipt Date: 20140224
  Transmission Date: 20141002
  Serious: Yes (Hospitalization)
  Sender: FDA-Public Use
  Company Number: GB-ASTRAZENECA-2014SE11387

PATIENT
  Age: 61 Year
  Sex: Male

DRUGS (5)
  1. BRILIQUE [Suspect]
     Indication: TROPONIN INCREASED
     Dosage: 180 MG LOADING DOSE
     Route: 048
     Dates: start: 20140215
  2. BRILIQUE [Suspect]
     Indication: ACUTE MYOCARDIAL INFARCTION
     Dosage: 180 MG LOADING DOSE
     Route: 048
     Dates: start: 20140215
  3. BRILIQUE [Suspect]
     Indication: TROPONIN INCREASED
     Route: 048
     Dates: start: 20140215
  4. BRILIQUE [Suspect]
     Indication: ACUTE MYOCARDIAL INFARCTION
     Route: 048
     Dates: start: 20140215
  5. ASPIRIN [Concomitant]
     Dosage: 300 MG INITIAL LOAD THEN 75 MG
     Dates: start: 20140215

REACTIONS (4)
  - Cerebrovascular accident [Unknown]
  - Myocardial infarction [Unknown]
  - VIIth nerve paralysis [Unknown]
  - Muscular weakness [Unknown]
